FAERS Safety Report 5363272-5 (Version None)
Quarter: 2007Q2

REPORT INFORMATION
  Report Type: 
  Country: None (occurrence: None)
  Receive Date: 20070530
  Receipt Date: 20070104
  Transmission Date: 20071010
  Serious: No
  Sender: FDA-Public Use
  Company Number: 2007PV027850

PATIENT
  Age: 52 Year
  Sex: Female
  Weight: 99.3377 kg

DRUGS (6)
  1. BYETTA [Suspect]
     Indication: DIABETES MELLITUS INSULIN-DEPENDENT
     Dosage: 10 MCG;BID;SC ; 5 MCG;BID;SC
     Route: 058
     Dates: start: 20061115, end: 20061129
  2. BYETTA [Suspect]
     Indication: DIABETES MELLITUS INSULIN-DEPENDENT
     Dosage: 10 MCG;BID;SC ; 5 MCG;BID;SC
     Route: 058
     Dates: start: 20061130, end: 20061230
  3. AVANDIA [Concomitant]
  4. MEDTRONIC MINIMED [Concomitant]
  5. INSULIN PUMP [Concomitant]
  6. VYTORIN [Concomitant]

REACTIONS (3)
  - EARLY SATIETY [None]
  - PRURITUS GENERALISED [None]
  - VOMITING [None]
